FAERS Safety Report 5799251-3 (Version None)
Quarter: 2008Q3

REPORT INFORMATION
  Report Type: 
  Country: None (occurrence: None)
  Receive Date: 20080702
  Receipt Date: 20080623
  Transmission Date: 20090109
  Serious: Yes (Life-Threatening, Hospitalization, Other)
  Sender: FDA-Public Use
  Company Number: GB-PFIZER INC-2008048495

PATIENT
  Sex: Female

DRUGS (15)
  1. NEURONTIN [Suspect]
     Indication: BACK PAIN
     Route: 048
  2. ACETYLSALICYLIC ACID SRT [Concomitant]
     Route: 048
  3. ALBUTEROL [Concomitant]
     Route: 055
  4. ATROVENT [Concomitant]
     Route: 055
  5. SODIUM CHLORIDE 0.9% [Concomitant]
     Route: 055
  6. LEVOTHYROXINE SODIUM [Concomitant]
  7. SALMETEROL [Concomitant]
     Route: 055
  8. BECLOMETHASONE DIPROPIONATE [Concomitant]
     Route: 055
  9. THEOPHYLLINE [Concomitant]
  10. PREDNISOLONE [Concomitant]
     Route: 048
  11. CIPROFLOXACIN [Concomitant]
  12. FENTANYL [Concomitant]
  13. ATORVASTATIN [Concomitant]
  14. ALENDRONIC ACID [Concomitant]
  15. FUROSEMIDE [Concomitant]

REACTIONS (4)
  - CHRONIC OBSTRUCTIVE PULMONARY DISEASE [None]
  - ESCHERICHIA SEPSIS [None]
  - LEUKOPENIA [None]
  - NEUTROPENIC SEPSIS [None]
